FAERS Safety Report 5000081-0 (Version None)
Quarter: 2006Q2

REPORT INFORMATION
  Report Type: 
  Country: None (occurrence: None)
  Receive Date: 20060509
  Receipt Date: 20060421
  Transmission Date: 20061013
  Serious: Yes (Hospitalization)
  Sender: FDA-Public Use
  Company Number: SE200604003577

PATIENT
  Age: 32 Year
  Sex: Female

DRUGS (4)
  1. CYMBALTA [Suspect]
     Indication: FIBROMYALGIA
     Dosage: 30 MG, DAILY (1/D), ORAL : 60 MG, DAILY (1/D), ORAL
     Route: 048
     Dates: start: 20051101, end: 20051201
  2. CYMBALTA [Suspect]
     Indication: FIBROMYALGIA
     Dosage: 30 MG, DAILY (1/D), ORAL : 60 MG, DAILY (1/D), ORAL
     Route: 048
     Dates: start: 20051201
  3. ALVEDON (PARACETAMOL) [Concomitant]
  4. CITODON (CODEINE PHOSPHATE, PARACETAMOL) [Concomitant]

REACTIONS (4)
  - HEADACHE [None]
  - INTRACRANIAL PRESSURE INCREASED [None]
  - INTRAOCULAR PRESSURE INCREASED [None]
  - VISION BLURRED [None]
